FAERS Safety Report 12213935 (Version 1)
Quarter: 2016Q1

REPORT INFORMATION
  Report Type: Spontaneous
  Country: US (occurrence: US)
  Receive Date: 20160328
  Receipt Date: 20160328
  Transmission Date: 20160526
  Serious: No
  Sender: FDA-Public Use
  Company Number: US-DEP_02604_2015

PATIENT
  Age: 84 Year
  Sex: Male
  Weight: 76 kg

DRUGS (8)
  1. GRALISE [Suspect]
     Active Substance: GABAPENTIN
     Route: 048
     Dates: start: 201408, end: 201412
  2. GRALISE [Suspect]
     Active Substance: GABAPENTIN
     Indication: BACK PAIN
     Route: 048
     Dates: start: 201412, end: 20150317
  3. GRALISE [Suspect]
     Active Substance: GABAPENTIN
     Dosage: REDUCED THE DOSE TO 1 TABLET
     Route: 048
     Dates: start: 20150318, end: 20150319
  4. PULMICORT TURBUHALER [Concomitant]
     Active Substance: BUDESONIDE
     Indication: ASTHMA
     Route: 055
  5. GRALISE [Suspect]
     Active Substance: GABAPENTIN
     Indication: OFF LABEL USE
     Route: 048
     Dates: start: 20150320
  6. GRALISE [Suspect]
     Active Substance: GABAPENTIN
     Indication: PAIN IN EXTREMITY
     Dosage: AT BEDTIME
     Route: 048
     Dates: start: 201407, end: 201408
  7. DIOVAN [Concomitant]
     Active Substance: VALSARTAN
     Indication: HYPERTENSION
     Route: 048
  8. ZETIA [Concomitant]
     Active Substance: EZETIMIBE
     Indication: BLOOD CHOLESTEROL ABNORMAL
     Route: 048

REACTIONS (2)
  - Gait disturbance [Recovered/Resolved]
  - Inappropriate schedule of drug administration [Unknown]

NARRATIVE: CASE EVENT DATE: 201407
